FAERS Safety Report 5217565-2 (Version None)
Quarter: 2007Q1

REPORT INFORMATION
  Report Type: 
  Country: None (occurrence: None)
  Receive Date: 20070124
  Receipt Date: 20060508
  Transmission Date: 20070707
  Serious: No
  Sender: FDA-Public Use
  Company Number: US-GLAXOSMITHKLINE-A0600081A

PATIENT
  Age: 64 Year
  Sex: Male

DRUGS (9)
  1. PAXIL CR [Suspect]
     Indication: DEPRESSION
     Dosage: 50MG PER DAY
     Route: 048
     Dates: start: 20041001, end: 20060101
  2. PAROXETINE HYDROCHLORIDE [Suspect]
  3. KLONOPIN [Concomitant]
  4. UNKNOWN MEDICATION [Concomitant]
  5. FLOMAX [Concomitant]
  6. COUMADIN [Concomitant]
  7. SYNTHROID [Concomitant]
  8. PRAVACHOL [Concomitant]
  9. GLIPIZIDE [Concomitant]

REACTIONS (2)
  - DRUG ADMINISTRATION ERROR [None]
  - DRUG INEFFECTIVE [None]
